FAERS Safety Report 6495164-2 (Version None)
Quarter: 2009Q4

REPORT INFORMATION
  Report Type: 
  Country: None (occurrence: None)
  Receive Date: 20091214
  Receipt Date: 20090508
  Transmission Date: 20100525
  Serious: No
  Sender: FDA-Public Use
  Company Number: US-BRISTOL-MYERS SQUIBB COMPANY-14616304

PATIENT
  Age: 5 Year
  Sex: Female
  Weight: 15 kg

DRUGS (2)
  1. ABILIFY [Suspect]
     Indication: AFFECTIVE DISORDER
     Dosage: STARTED 6 OR 7MG IN DEC07
  2. CLONIDINE [Concomitant]

REACTIONS (3)
  - DYSPHEMIA [None]
  - MOOD ALTERED [None]
  - TARDIVE DYSKINESIA [None]
